FAERS Safety Report 11673997 (Version 2)
Quarter: 2015Q4

REPORT INFORMATION
  Report Type: Spontaneous
  Country: CZ (occurrence: CZ)
  Receive Date: 20151028
  Receipt Date: 20151105
  Transmission Date: 20160304
  Serious: Yes (Hospitalization)
  Sender: FDA-Public Use
  Company Number: CZ-ACTAVIS-2015-22925

PATIENT
  Age: 44 Year
  Sex: Male
  Weight: 65 kg

DRUGS (12)
  1. DOCETAXEL ACTAVIS [Suspect]
     Active Substance: DOCETAXEL
     Indication: PALLIATIVE CARE
     Dosage: UNK UNK, 1/ THREE WEEKS
     Route: 041
     Dates: start: 20151007, end: 20151007
  2. OXYCONTIN [Concomitant]
     Active Substance: OXYCODONE HYDROCHLORIDE
     Indication: PRODUCT USED FOR UNKNOWN INDICATION
     Dosage: 10 MG, BID (EVERY 12 HOURS)
     Route: 065
  3. FORTECORTIN                        /00016002/ [Concomitant]
     Indication: PRODUCT USED FOR UNKNOWN INDICATION
     Dosage: 4 MG, QID (2-0-2)
     Route: 065
  4. AULIN [Concomitant]
     Active Substance: NIMESULIDE
     Indication: PRODUCT USED FOR UNKNOWN INDICATION
     Dosage: 100 MG, BID (1-0-1)
     Route: 065
  5. TRALGIT [Concomitant]
     Active Substance: TRAMADOL
     Indication: PRODUCT USED FOR UNKNOWN INDICATION
     Dosage: 30 GTT DROP(S), TID (30-30-30)
     Route: 065
  6. LACTULOSA [Concomitant]
     Active Substance: LACTULOSE
     Indication: PRODUCT USED FOR UNKNOWN INDICATION
     Dosage: 10 ML, DAILY (1-0-0)
     Route: 065
  7. LYRICA [Concomitant]
     Active Substance: PREGABALIN
     Indication: PRODUCT USED FOR UNKNOWN INDICATION
     Dosage: 75 MG, BID (1-0-1)
     Route: 065
  8. AVERTIN [Concomitant]
     Indication: PRODUCT USED FOR UNKNOWN INDICATION
     Dosage: 16 MG, TID (1-1-1)
     Route: 065
  9. BACLOFEN POLPHARMA [Concomitant]
     Indication: PRODUCT USED FOR UNKNOWN INDICATION
     Dosage: 25 MG, TID (1-1-1)
     Route: 065
  10. TISERCIN                           /00038601/ [Concomitant]
     Indication: PRODUCT USED FOR UNKNOWN INDICATION
     Dosage: 25 MG, BID (0-0-0-2)
     Route: 065
  11. PROSULPIN [Concomitant]
     Active Substance: SULPIRIDE
     Indication: PRODUCT USED FOR UNKNOWN INDICATION
     Dosage: 200 MG, UNK (1/2-0-1)
     Route: 065
  12. FENTANYL RATIOPHARM [Concomitant]
     Indication: PRODUCT USED FOR UNKNOWN INDICATION
     Dosage: 1 DF, 1 DOSE EVERT THREE DAYS
     Route: 065

REACTIONS (6)
  - Nasal discomfort [Recovered/Resolved]
  - Blood pressure increased [Recovered/Resolved]
  - Glossodynia [Recovered/Resolved]
  - Dyskinesia [Recovered/Resolved]
  - Asthenia [Recovered/Resolved]
  - Malaise [Recovered/Resolved]

NARRATIVE: CASE EVENT DATE: 20151007
